FAERS Safety Report 8521755-0 (Version None)
Quarter: 2012Q3

REPORT INFORMATION
  Report Type: 
  Country: None (occurrence: None)
  Receive Date: 20120719
  Receipt Date: 20120709
  Transmission Date: 20120928
  Serious: Yes (Other)
  Sender: FDA-Public Use
  Company Number: JP-VERTEX PHARMACEUTICALS INC.-AE-2012-008528

PATIENT
  Age: 68 Year
  Sex: Female

DRUGS (14)
  1. TELAVIC (TELAPREVIR) [Suspect]
     Indication: HEPATITIS C
     Route: 048
     Dates: start: 20120601, end: 20120606
  2. RIBAVIRIN [Concomitant]
     Indication: HEPATITIS C
     Route: 048
     Dates: start: 20120601, end: 20120621
  3. PEGINTERFERON ALFA-2B [Concomitant]
     Indication: HEPATITIS C
     Route: 058
     Dates: start: 20120601, end: 20120622
  4. METFORMIN HCL [Concomitant]
     Route: 048
  5. VITAMIN B12 [Concomitant]
     Route: 048
  6. LULICON : SOLUTION [Concomitant]
     Route: 051
     Dates: start: 20120604
  7. RIBAVIRIN [Concomitant]
     Route: 048
     Dates: start: 20120622, end: 20120628
  8. TELAVIC (TELAPREVIR) [Suspect]
     Route: 048
     Dates: start: 20120607, end: 20120628
  9. EQUA [Concomitant]
     Route: 048
  10. ASPARA-CA [Concomitant]
     Route: 048
  11. LEVOTHYROXINE SODIUM [Concomitant]
     Route: 048
  12. LEVOTHYROXINE SODIUM [Concomitant]
     Route: 048
  13. PRAVASTATIN [Concomitant]
     Route: 048
  14. AMARYL [Concomitant]
     Route: 048

REACTIONS (7)
  - HYPERURICAEMIA [None]
  - DIZZINESS [None]
  - DECREASED APPETITE [None]
  - RASH [None]
  - ANAEMIA [None]
  - MALAISE [None]
  - NAUSEA [None]
